FAERS Safety Report 21359910 (Version 1)
Quarter: 2022Q3

REPORT INFORMATION
  Report Type: Spontaneous
  Country: GB (occurrence: GB)
  Receive Date: 20220921
  Receipt Date: 20220921
  Transmission Date: 20221027
  Serious: Yes (Other)
  Sender: FDA-Public Use
  Company Number: GB-HBP-2022GB027514

PATIENT
  Age: 51 Year
  Sex: Male
  Weight: 105 kg

DRUGS (3)
  1. MECHLORETHAMINE HYDROCHLORIDE [Suspect]
     Active Substance: MECHLORETHAMINE HYDROCHLORIDE
     Indication: Cutaneous T-cell lymphoma stage I
     Dosage: UNK, FOR PATCH OF MF ON HIS CHEST
     Route: 061
     Dates: start: 202110
  2. MECHLORETHAMINE HYDROCHLORIDE [Suspect]
     Active Substance: MECHLORETHAMINE HYDROCHLORIDE
     Dosage: UNK, QD FOR PATCH OF MF ON LEFT FLANK
     Route: 061
     Dates: start: 202204, end: 2022
  3. MECHLORETHAMINE HYDROCHLORIDE [Suspect]
     Active Substance: MECHLORETHAMINE HYDROCHLORIDE
     Dosage: UNK, 1/WEEK TO COUPLE OF PATCHES OF MF ON THE ABDOMEN
     Route: 061
     Dates: start: 202205, end: 2022

REACTIONS (5)
  - Dermatitis contact [Recovered/Resolved]
  - Off label use [Unknown]
  - Dermatitis [Recovered/Resolved]
  - Oedema [Recovered/Resolved]
  - Blister [Recovered/Resolved]

NARRATIVE: CASE EVENT DATE: 20220401
